FAERS Safety Report 12864376 (Version 1)
Quarter: 2016Q4

REPORT INFORMATION
  Report Type: Spontaneous
  Country: US (occurrence: US)
  Receive Date: 20161020
  Receipt Date: 20161020
  Transmission Date: 20170207
  Serious: No
  Sender: FDA-Public Use
  Company Number: US-TEVA-604521USA

PATIENT
  Sex: Female

DRUGS (2)
  1. PHENTERMINE. [Suspect]
     Active Substance: PHENTERMINE
     Indication: OBESITY
     Dosage: 37.5
     Route: 065
     Dates: start: 201310, end: 201504
  2. ALENDRONATE SODIUM. [Concomitant]
     Active Substance: ALENDRONATE SODIUM

REACTIONS (3)
  - Increased appetite [Unknown]
  - Drug ineffective [Unknown]
  - Osteopenia [Unknown]
